FAERS Safety Report 21984262 (Version 1)
Quarter: 2023Q1

REPORT INFORMATION
  Report Type: Spontaneous
  Country: CH (occurrence: None)
  Receive Date: 20230213
  Receipt Date: 20230213
  Transmission Date: 20230418
  Serious: Yes (Other)
  Sender: FDA-Public Use
  Company Number: CH-MICRO LABS LIMITED-ML2023-00705

PATIENT
  Age: 84 Year
  Sex: Female

DRUGS (16)
  1. MEFENAMIC ACID [Suspect]
     Active Substance: MEFENAMIC ACID
  2. METOPROLOL [Suspect]
     Active Substance: METOPROLOL
  3. LISINOPRIL [Suspect]
     Active Substance: LISINOPRIL
  4. ROSUVASTATIN [Suspect]
     Active Substance: ROSUVASTATIN
  5. METAMIZOLE [Suspect]
     Active Substance: METAMIZOLE
  6. ESOMEPRAZOLE [Concomitant]
     Active Substance: ESOMEPRAZOLE
  7. CLOPIDOGREL [Concomitant]
     Active Substance: CLOPIDOGREL BISULFATE
  8. LEVOTHYROXINE [Concomitant]
     Active Substance: LEVOTHYROXINE
  9. NALOXONE HYDROCHLORIDE\OXYCODONE HYDROCHLORIDE [Concomitant]
     Active Substance: NALOXONE HYDROCHLORIDE\OXYCODONE HYDROCHLORIDE
  10. ACETAMINOPHEN\TRAMADOL [Concomitant]
     Active Substance: ACETAMINOPHEN\TRAMADOL
  11. PRAMIPEXOLE [Concomitant]
     Active Substance: PRAMIPEXOLE
  12. TIZANIDINE [Concomitant]
     Active Substance: TIZANIDINE
  13. LORAZEPAM [Concomitant]
     Active Substance: LORAZEPAM
  14. IBANDRONATE SODIUM [Concomitant]
     Active Substance: IBANDRONATE SODIUM
  15. CHOLECALCIFEROL [Concomitant]
     Active Substance: CHOLECALCIFEROL
  16. SODIUM PICOSULFATE [Concomitant]
     Active Substance: SODIUM PICOSULFATE

REACTIONS (1)
  - Pemphigoid [Unknown]
